FAERS Safety Report 8906761 (Version 1)
Quarter: 2012Q4

REPORT INFORMATION
  Report Type: 
  Country: US (occurrence: US)
  Receive Date: 20121113
  Receipt Date: 20121113
  Transmission Date: 20130627
  Serious: No
  Sender: FDA-Public Use
  Company Number: US-AMGEN-USASP2012010970

PATIENT
  Sex: Male

DRUGS (7)
  1. ENBREL [Suspect]
     Indication: PRODUCT USED FOR UNKNOWN INDICATION
     Dosage: 50 mg, qwk
  2. FLEXERIL                           /00428402/ [Concomitant]
     Dosage: 10 mg, UNK
  3. PROTONIX [Concomitant]
     Dosage: 20 mg, UNK
  4. VICODIN [Concomitant]
     Dosage: 500 mg, UNK
  5. TRAMADOL [Concomitant]
     Dosage: 50 mg, UNK
  6. NABUMETONE [Concomitant]
     Dosage: 500 mg, UNK
  7. SKELAXIN                           /00611501/ [Concomitant]
     Dosage: 800 mg, UNK

REACTIONS (1)
  - Rash [Unknown]
